FAERS Safety Report 6148566-8 (Version None)
Quarter: 2009Q2

REPORT INFORMATION
  Report Type: 
  Country: None (occurrence: None)
  Receive Date: 20090408
  Receipt Date: 20090330
  Transmission Date: 20091009
  Serious: Yes (Other)
  Sender: FDA-Public Use
  Company Number: PHHY2009GB12167

PATIENT
  Sex: Male

DRUGS (1)
  1. CLOZARIL [Suspect]
     Indication: SCHIZOPHRENIA
     Dosage: 325 MG
     Route: 048
     Dates: start: 20090204, end: 20090327

REACTIONS (7)
  - ELECTROENCEPHALOGRAM ABNORMAL [None]
  - FEELING OF BODY TEMPERATURE CHANGE [None]
  - INSOMNIA [None]
  - SALIVARY HYPERSECRETION [None]
  - SOMNOLENCE [None]
  - THIRST [None]
  - TREATMENT NONCOMPLIANCE [None]
